FAERS Safety Report 26083074 (Version 1)
Quarter: 2025Q4

REPORT INFORMATION
  Report Type: Spontaneous
  Country: CN (occurrence: CN)
  Receive Date: 20251124
  Receipt Date: 20251124
  Transmission Date: 20260118
  Serious: Yes (Hospitalization, Other)
  Sender: ELI LILLY AND COMPANY
  Company Number: CN-ELI_LILLY_AND_COMPANY-CN202511019394

PATIENT
  Age: 73 Year
  Sex: Male
  Weight: 53 kg

DRUGS (3)
  1. RAMUCIRUMAB [Suspect]
     Active Substance: RAMUCIRUMAB
     Indication: Gastric cancer
     Dosage: 500 MG, Q3W
     Route: 041
     Dates: start: 20251026
  2. SINTILIMAB [Suspect]
     Active Substance: SINTILIMAB
     Indication: Gastric cancer
     Dosage: 100 MG, Q3W
     Route: 041
     Dates: start: 20251027
  3. PACLITAXEL [Suspect]
     Active Substance: PACLITAXEL
     Indication: Gastric cancer
     Dosage: 210 MG, Q3W
     Route: 041
     Dates: start: 20251027

REACTIONS (10)
  - Skin erosion [Recovering/Resolving]
  - Mouth ulceration [Unknown]
  - Malaise [Unknown]
  - Mucosal inflammation [Unknown]
  - Mucosal ulceration [Unknown]
  - Mucosal irritation [Unknown]
  - Myelosuppression [Unknown]
  - Nausea [Unknown]
  - Feeding disorder [Unknown]
  - Fatigue [Unknown]

NARRATIVE: CASE EVENT DATE: 20251031
